FAERS Safety Report 24630613 (Version 1)
Quarter: 2024Q4

REPORT INFORMATION
  Report Type: Spontaneous
  Country: US (occurrence: US)
  Receive Date: 20241118
  Receipt Date: 20241118
  Transmission Date: 20250115
  Serious: Yes (Death, Other)
  Sender: AMGEN
  Company Number: US-AMGEN-USASP2024223142

PATIENT
  Age: 8 Year
  Sex: Male

DRUGS (2)
  1. PREDNISONE [Suspect]
     Active Substance: PREDNISONE
     Indication: Pericarditis
     Dosage: HIGH DOSE
     Route: 065
  2. COLCHICINE [Concomitant]
     Active Substance: COLCHICINE

REACTIONS (4)
  - Restrictive cardiomyopathy [Fatal]
  - Pulmonary hypertension [Unknown]
  - Therapeutic product effect incomplete [Unknown]
  - Off label use [Unknown]
